FAERS Safety Report 23764454 (Version 1)
Quarter: 2024Q2

REPORT INFORMATION
  Report Type: Spontaneous
  Country: US (occurrence: US)
  Receive Date: 20240420
  Receipt Date: 20240420
  Transmission Date: 20240715
  Serious: No
  Sender: FDA-Public Use
  Company Number: US-HALEON-2166834

PATIENT
  Sex: Female

DRUGS (1)
  1. ACETAMINOPHEN, DEXTROMETHORPHAN HYDROBROMIDE [Suspect]
     Active Substance: ACETAMINOPHEN\DEXTROMETHORPHAN HYDROBROMIDE
     Indication: Product used for unknown indication
     Dosage: 1 TABLESPOON

REACTIONS (4)
  - Asthenopia [Unknown]
  - Somnolence [Unknown]
  - Feeling abnormal [Unknown]
  - Incorrect dose administered [Unknown]
